FAERS Safety Report 12392077 (Version 1)
Quarter: 2016Q2

REPORT INFORMATION
  Report Type: Spontaneous
  Country: US (occurrence: US)
  Receive Date: 20160523
  Receipt Date: 20160523
  Transmission Date: 20160815
  Serious: No
  Sender: FDA-Public Use
  Company Number: US-BIOGEN-2016BI00226285

PATIENT

DRUGS (1)
  1. TECFIDERA [Suspect]
     Active Substance: DIMETHYL FUMARATE
     Indication: MULTIPLE SCLEROSIS
     Route: 065

REACTIONS (28)
  - Hypoaesthesia [Unknown]
  - Weight increased [Unknown]
  - Diarrhoea [Unknown]
  - Malaise [Unknown]
  - Adverse drug reaction [Unknown]
  - Feeling hot [Unknown]
  - Fatigue [Unknown]
  - Flushing [Unknown]
  - Generalised erythema [Unknown]
  - Rash [Unknown]
  - Nervousness [Unknown]
  - Burning sensation [Unknown]
  - Flatulence [Unknown]
  - Rash macular [Unknown]
  - Pruritus [Unknown]
  - Liver function test abnormal [Unknown]
  - Pain [Unknown]
  - Abdominal pain upper [Unknown]
  - Headache [Unknown]
  - Neck pain [Unknown]
  - Dyspepsia [Unknown]
  - Paraesthesia [Unknown]
  - Migraine [Unknown]
  - Pain in extremity [Unknown]
  - Alopecia [Unknown]
  - Rhinorrhoea [Unknown]
  - Multiple sclerosis relapse [Unknown]
  - Abdominal discomfort [Unknown]
